FAERS Safety Report 7408065 (Version 7)
Quarter: 2015Q1

REPORT INFORMATION
  Report Type: Spontaneous
  Country: JP (occurrence: JP)
  Receive Date: 20100603
  Receipt Date: 20150324
  Transmission Date: 20150721
  Serious: Yes (Death, Other)
  Sender: FDA-Public Use
  Company Number: JP-PFIZER INC-2010066507

PATIENT
  Age: 62 Year
  Sex: Male
  Weight: 59 kg

DRUGS (17)
  1. RIZE [Concomitant]
     Active Substance: CLOTIAZEPAM
     Indication: INSOMNIA
     Dosage: 5 MG, 1X/DAY
     Route: 048
     Dates: start: 200802
  2. BIOFERMIN [Concomitant]
     Active Substance: BACILLUS SUBTILIS\LACTOBACILLUS ACIDOPHILUS\STREPTOCOCCUS FAECAIS
     Indication: DIARRHOEA
     Dosage: 1 G, 3X/DAY
     Route: 048
     Dates: start: 2005
  3. ROCALTROL [Concomitant]
     Active Substance: CALCITRIOL
     Indication: OSTEOPOROSIS
     Dosage: 0.5 UG, 2X/WEEK
     Route: 042
     Dates: start: 2007
  4. KM POWDER [Concomitant]
     Indication: CHRONIC GASTRITIS
     Dosage: 1 G, 2X/DAY
     Route: 048
     Dates: start: 2005
  5. RISUMIC [Concomitant]
     Active Substance: AMEZINIUM METILSULFATE
     Indication: PROCEDURAL HYPOTENSION
     Dosage: 10 MG, ONLY ON DAY OF HEMODIALYSIS
     Route: 048
     Dates: start: 2005
  6. GLYCYRRHIZIC ACID [Concomitant]
     Active Substance: GLYCYRRHIZIN
     Indication: CHRONIC HEPATITIS
     Dosage: 2 DF, 3X/DAY
     Route: 048
     Dates: start: 2005
  7. SUNITINIB MALATE [Suspect]
     Active Substance: SUNITINIB MALATE
     Indication: RENAL CANCER
     Dosage: 50 MG, 1X/DAY
     Route: 048
     Dates: start: 20100317, end: 20100323
  8. DIGOXIN. [Concomitant]
     Active Substance: DIGOXIN
     Indication: ATRIAL FIBRILLATION
     Dosage: 0.062 MG, ALTERNATE DAY
     Route: 048
     Dates: start: 200610
  9. SUNITINIB MALATE [Suspect]
     Active Substance: SUNITINIB MALATE
     Dosage: 25 MG, 1X/DAY
     Route: 048
     Dates: start: 20100324, end: 20100326
  10. CALTAN [Concomitant]
     Active Substance: CALCIUM CARBONATE
     Indication: HYPERPARATHYROIDISM SECONDARY
     Dosage: 500 MG, 3X/DAY
     Route: 048
     Dates: start: 2005
  11. KALIMATE [Concomitant]
     Active Substance: CALCIUM POLYSTYRENE SULFONATE
     Indication: HYPERKALAEMIA
     Dosage: 5 MG, 1X/DAY
     Route: 048
     Dates: start: 2005
  12. MYSLEE [Concomitant]
     Active Substance: ZOLPIDEM TARTRATE
     Indication: INSOMNIA
     Dosage: 10 MG, 1X/DAY
     Route: 048
     Dates: start: 200902
  13. PRONON [Concomitant]
     Active Substance: PROPAFENONE
     Indication: ATRIAL FIBRILLATION
     Dosage: 150 MG, 2X/DAY
     Route: 048
     Dates: start: 2006
  14. MUCOSTA [Concomitant]
     Active Substance: REBAMIPIDE
     Indication: CHRONIC GASTRITIS
     Dosage: 100 MG, 3X/DAY
     Route: 048
     Dates: start: 2006
  15. NESPO ^AMGEN^ [Concomitant]
     Indication: NEPHROGENIC ANAEMIA
     Dosage: 10 UG, WEEKLY
     Route: 042
     Dates: start: 2007
  16. PRIMPERAN [Concomitant]
     Active Substance: METOCLOPRAMIDE HYDROCHLORIDE
     Indication: CHRONIC GASTRITIS
     Dosage: 10 MG, 3X/WEEK
     Route: 041
     Dates: start: 2007
  17. BAYASPIRIN [Concomitant]
     Active Substance: ASPIRIN
     Indication: ATRIAL FIBRILLATION
     Dosage: 100 MG, 1X/DAY
     Route: 048
     Dates: start: 2006

REACTIONS (7)
  - Multi-organ failure [Fatal]
  - Hepatitis fulminant [Fatal]
  - Oesophageal varices haemorrhage [Not Recovered/Not Resolved]
  - Platelet count decreased [Fatal]
  - Mental disorder [Not Recovered/Not Resolved]
  - Epistaxis [Not Recovered/Not Resolved]
  - Disseminated intravascular coagulation [Fatal]

NARRATIVE: CASE EVENT DATE: 2010
